FAERS Safety Report 24436414 (Version 2)
Quarter: 2024Q4

REPORT INFORMATION
  Report Type: Spontaneous
  Country: CA (occurrence: CA)
  Receive Date: 20241015
  Receipt Date: 20241211
  Transmission Date: 20250115
  Serious: Yes (Other)
  Sender: CELLTRION
  Company Number: CA-PFIZER INC-202400119687

PATIENT

DRUGS (3)
  1. INFLECTRA [Suspect]
     Active Substance: INFLIXIMAB-DYYB
     Indication: Rheumatoid arthritis
     Dosage: 300 MG (4.07 MG/KG), W 0, 2, 6 AND EVERY (Q) 8 WEEKS
     Route: 042
     Dates: start: 20240606
  2. INFLECTRA [Suspect]
     Active Substance: INFLIXIMAB-DYYB
     Dosage: 300 MG (4.07 MG/KG), W 0, 2, 6 AND EVERY (Q) 8 WEEKS
     Route: 042
     Dates: start: 20240718, end: 20240718
  3. METHOTREXATE [Concomitant]
     Active Substance: METHOTREXATE
     Dosage: 1 DF
     Dates: start: 202301

REACTIONS (3)
  - Pneumonia [Not Recovered/Not Resolved]
  - Rheumatoid arthritis-associated interstitial lung disease [Unknown]
  - Off label use [Unknown]

NARRATIVE: CASE EVENT DATE: 20240801
